FAERS Safety Report 25874623 (Version 1)
Quarter: 2025Q4

REPORT INFORMATION
  Report Type: Spontaneous
  Country: US (occurrence: US)
  Receive Date: 20251002
  Receipt Date: 20251002
  Transmission Date: 20260117
  Serious: No
  Sender: ABBVIE
  Company Number: US-ABBVIE-6482146

PATIENT
  Sex: Female

DRUGS (1)
  1. UPADACITINIB [Suspect]
     Active Substance: UPADACITINIB
     Indication: Pemphigus
     Route: 048

REACTIONS (5)
  - Off label use [Unknown]
  - Rash [Unknown]
  - Inflammation [Unknown]
  - Skin weeping [Unknown]
  - Rash erythematous [Unknown]
